FAERS Safety Report 7715938-7 (Version None)
Quarter: 2011Q3

REPORT INFORMATION
  Report Type: 
  Country: None (occurrence: None)
  Receive Date: 20110829
  Receipt Date: 20110822
  Transmission Date: 20111222
  Serious: Yes (Other)
  Sender: FDA-Public Use
  Company Number: JP-B.I. PHARMACEUTICALS,INC./RIDGEFIELD-2011-BP-17068NB

PATIENT

DRUGS (5)
  1. EPADEL [Concomitant]
  2. PRADAXA [Suspect]
     Dosage: 220 MG
     Dates: start: 20110324, end: 20110628
  3. URINORM [Concomitant]
  4. AMLODIPINE [Concomitant]
  5. OLMESARTAN MEDOXOMIL [Concomitant]

REACTIONS (4)
  - INTERNATIONAL NORMALISED RATIO INCREASED [None]
  - ACTIVATED PARTIAL THROMBOPLASTIN TIME PROLONGED [None]
  - GLOMERULAR FILTRATION RATE DECREASED [None]
  - PROTHROMBIN TIME PROLONGED [None]
